FAERS Safety Report 24158650 (Version 1)
Quarter: 2024Q3

REPORT INFORMATION
  Report Type: Spontaneous
  Country: US (occurrence: None)
  Receive Date: 20240731
  Receipt Date: 20240731
  Transmission Date: 20241017
  Serious: Yes (Death, Hospitalization, Other)
  Sender: ASTRAZENECA
  Company Number: 2024A173322

PATIENT
  Age: 2 Month
  Sex: Female
  Weight: 2.7 kg

DRUGS (1)
  1. BEYFORTUS [Suspect]
     Active Substance: NIRSEVIMAB-ALIP
     Indication: Respiratory syncytial virus immunisation
     Dosage: 1 DF, TOTAL1.0DF ONCE/SINGLE ADMINISTRATION
     Route: 030

REACTIONS (1)
  - Death [Fatal]
